FAERS Safety Report 10268417 (Version 1)
Quarter: 2014Q2

REPORT INFORMATION
  Report Type: Spontaneous
  Country: US (occurrence: US)
  Receive Date: 20140630
  Receipt Date: 20140630
  Transmission Date: 20141212
  Serious: Yes (Other)
  Sender: FDA-Public Use
  Company Number: US-BRISTOL-MYERS SQUIBB COMPANY-21057831

PATIENT
  Age: 74 Year
  Sex: Female
  Weight: 81.63 kg

DRUGS (3)
  1. BYETTA PEN DISPOSABLE [Suspect]
     Dosage: ONGOING
     Route: 058
     Dates: start: 2006
  2. GLYBURIDE [Suspect]
  3. LOSARTAN [Concomitant]

REACTIONS (3)
  - Cataract [Unknown]
  - Blood glucose fluctuation [Unknown]
  - Drug dose omission [Unknown]
